FAERS Safety Report 14825709 (Version 2)
Quarter: 2018Q2

REPORT INFORMATION
  Report Type: Report from Study
  Country: CL (occurrence: CL)
  Receive Date: 20180430
  Receipt Date: 20180627
  Transmission Date: 20180711
  Serious: Yes (Hospitalization)
  Sender: FDA-Public Use
  Company Number: CL-BRISTOL-MYERS SQUIBB COMPANY-BMS-2018-036116

PATIENT
  Age: 46 Year
  Sex: Female

DRUGS (1)
  1. ABATACEPT [Suspect]
     Active Substance: ABATACEPT
     Indication: RHEUMATOID ARTHRITIS
     Dosage: 125 MG, QWK
     Route: 058
     Dates: start: 20170120

REACTIONS (6)
  - Weight increased [Recovering/Resolving]
  - Strabismus [Recovering/Resolving]
  - Corneal thinning [Recovering/Resolving]
  - Somnolence [Recovering/Resolving]
  - Irritability [Recovering/Resolving]
  - Astigmatism [Recovering/Resolving]

NARRATIVE: CASE EVENT DATE: 20180615
